FAERS Safety Report 6796378-4 (Version None)
Quarter: 2010Q2

REPORT INFORMATION
  Report Type: 
  Country: None (occurrence: None)
  Receive Date: 20100622
  Receipt Date: 20080117
  Transmission Date: 20101027
  Serious: Yes (Hospitalization, Other)
  Sender: FDA-Public Use
  Company Number: LEO-2010-00537

PATIENT
  Age: 28 Year
  Sex: Female
  Weight: 62 kg

DRUGS (4)
  1. INNOHEP [Suspect]
     Indication: THROMBOSIS PROPHYLAXIS
     Dosage: 4500 IU (4500 IU, 1 IN 1 D), 4500 IU (4500 IU, 1 IN 1 D)
     Dates: start: 20061110, end: 20070607
  2. INNOHEP [Suspect]
     Indication: THROMBOSIS PROPHYLAXIS
     Dosage: 4500 IU (4500 IU, 1 IN 1 D), 4500 IU (4500 IU, 1 IN 1 D)
     Dates: start: 20070609, end: 20070620
  3. INNOHEP [Suspect]
     Indication: THROMBOSIS PROPHYLAXIS
     Dosage: 4500 IU (4500 IU, 1 IN 1 D), 4500 IU (4500 IU, 1 IN 1 D)
     Dates: start: 20070623, end: 20070803
  4. SALBUTAMOL (SALBUTAMOL) [Concomitant]

REACTIONS (3)
  - ASTHMA [None]
  - DRUG EXPOSURE DURING PREGNANCY [None]
  - VOMITING IN PREGNANCY [None]
